FAERS Safety Report 7412694-7 (Version None)
Quarter: 2011Q2

REPORT INFORMATION
  Report Type: 
  Country: None (occurrence: None)
  Receive Date: 20110413
  Receipt Date: 20101026
  Transmission Date: 20111010
  Serious: Yes (Other)
  Sender: FDA-Public Use
  Company Number: US-BAYER-201023234NA

PATIENT
  Age: 28 Year
  Sex: Female
  Weight: 121.54 kg

DRUGS (13)
  1. OCELLA [Suspect]
     Indication: PRODUCT USED FOR UNKNOWN INDICATION
     Route: 048
     Dates: start: 20080101
  2. MULTI-VITAMINS [Concomitant]
  3. ACETAMINOPHEN [Concomitant]
     Indication: HEADACHE
  4. ADVIL LIQUI-GELS [Concomitant]
     Indication: MUSCLE SPASMS
  5. ACETAMINOPHEN [Concomitant]
     Indication: MUSCLE SPASMS
  6. LASIX [Concomitant]
     Indication: BLOOD PRESSURE INCREASED
  7. VERAPAMIL [Concomitant]
     Indication: MIGRAINE PROPHYLAXIS
  8. ANTIBIOTICS [Concomitant]
  9. ATIVAN [Concomitant]
     Indication: BLOOD MAGNESIUM DECREASED
     Dosage: UNK
     Dates: start: 20081210
  10. VERAPAMIL [Concomitant]
     Indication: BLOOD PRESSURE INCREASED
     Dosage: UNK
     Dates: start: 20081216
  11. ADVIL LIQUI-GELS [Concomitant]
     Indication: HEADACHE
  12. YASMIN [Suspect]
     Indication: PRODUCT USED FOR UNKNOWN INDICATION
     Route: 048
     Dates: start: 20080101
  13. MIGRAINE MEDICATION [Concomitant]

REACTIONS (7)
  - PARAESTHESIA [None]
  - HEMIPARESIS [None]
  - HYPOAESTHESIA [None]
  - MENTAL DISORDER [None]
  - FALL [None]
  - CEREBROVASCULAR ACCIDENT [None]
  - CEREBRAL INFARCTION [None]
